FAERS Safety Report 5203505-9 (Version None)
Quarter: 2007Q1

REPORT INFORMATION
  Report Type: 
  Country: None (occurrence: None)
  Receive Date: 20070110
  Receipt Date: 20070104
  Transmission Date: 20070707
  Serious: Yes (Other)
  Sender: FDA-Public Use
  Company Number: 2007AC00019

PATIENT
  Age: 39 Year
  Sex: Male

DRUGS (2)
  1. SEROQUEL [Suspect]
     Indication: GENERALISED ANXIETY DISORDER
  2. CLONIDINE [Concomitant]
     Indication: GENERALISED ANXIETY DISORDER

REACTIONS (1)
  - DRUG DEPENDENCE [None]
